FAERS Safety Report 11294947 (Version 1)
Quarter: 2015Q3

REPORT INFORMATION
  Report Type: Spontaneous
  Country: BE (occurrence: BE)
  Receive Date: 20150723
  Receipt Date: 20150723
  Transmission Date: 20151125
  Serious: Yes (Other)
  Sender: FDA-Public Use
  Company Number: BE-009507513-1507BEL010353

PATIENT
  Sex: Male

DRUGS (1)
  1. INEGY [Suspect]
     Active Substance: EZETIMIBE\SIMVASTATIN
     Route: 048

REACTIONS (1)
  - Renal failure [Unknown]
